FAERS Safety Report 8793451 (Version 1)
Quarter: 2012Q4

REPORT INFORMATION
  Report Type: 
  Country: US (occurrence: US)
  Receive Date: 20120917
  Receipt Date: 20120917
  Transmission Date: 20130627
  Serious: Yes (Other)
  Sender: FDA-Public Use
  Company Number: US-ASTRAZENECA-2012SE70110

PATIENT
  Age: 82 Year
  Sex: Female
  Weight: 73 kg

DRUGS (9)
  1. NEXIUM [Suspect]
     Indication: GASTROOESOPHAGEAL REFLUX DISEASE
     Route: 048
  2. LISINOPRIL [Suspect]
     Indication: HYPERTENSION
     Route: 048
  3. PRILOSEC OTC [Suspect]
     Indication: GASTROOESOPHAGEAL REFLUX DISEASE
     Dosage: DAILY
     Route: 048
     Dates: start: 2007, end: 20120906
  4. PRILOSEC OTC [Suspect]
     Indication: GASTRIC DISORDER
     Dosage: DAILY
     Route: 048
     Dates: start: 2007, end: 20120906
  5. METOPROLOL [Concomitant]
     Indication: HYPERTENSION
     Dates: start: 2007
  6. ANASTROZOLE [Concomitant]
     Indication: BREAST CANCER
     Dates: start: 2007
  7. AREDS MADE BY BAUCH AND LAUB [Concomitant]
     Indication: VITAMIN SUPPLEMENTATION
     Route: 048
  8. METAMUCIL [Concomitant]
     Indication: CONSTIPATION
     Route: 048
  9. MIRALAX [Concomitant]
     Indication: CONSTIPATION
     Route: 048

REACTIONS (8)
  - Macular degeneration [Unknown]
  - Cataract [Unknown]
  - Arthropathy [Unknown]
  - Blood pressure increased [Unknown]
  - Laboratory test abnormal [Unknown]
  - Osteoarthritis [Unknown]
  - Constipation [Unknown]
  - Abdominal discomfort [Unknown]
